FAERS Safety Report 22648497 (Version 1)
Quarter: 2023Q2

REPORT INFORMATION
  Report Type: Report from Study
  Country: US (occurrence: US)
  Receive Date: 20230628
  Receipt Date: 20230628
  Transmission Date: 20230722
  Serious: Yes (Hospitalization, Disabling, Other)
  Sender: FDA-Public Use
  Company Number: US-TAKEDA-2023TUS050410

PATIENT
  Age: 50 Year
  Sex: Female
  Weight: 49.44 kg

DRUGS (4)
  1. PONATINIB [Suspect]
     Active Substance: PONATINIB
     Indication: Chronic myeloid leukaemia
     Dosage: 15 MILLIGRAM, QD
     Route: 048
  2. PONATINIB [Suspect]
     Active Substance: PONATINIB
     Dosage: 30 MILLIGRAM, QD
     Route: 048
     Dates: start: 20230425
  3. ALDACTONE [Concomitant]
     Active Substance: SPIRONOLACTONE
     Indication: Polyuria
     Dosage: UNK
     Route: 065
  4. PROPRANOLOL [Concomitant]
     Active Substance: PROPRANOLOL HYDROCHLORIDE
     Dosage: UNK
     Route: 065

REACTIONS (9)
  - Hepatosplenomegaly [Unknown]
  - Peripheral swelling [Unknown]
  - Sepsis [Unknown]
  - Gait disturbance [Not Recovered/Not Resolved]
  - Eye pain [Not Recovered/Not Resolved]
  - Oedema peripheral [Unknown]
  - Weight abnormal [Unknown]
  - Illness [Unknown]
  - Product dose omission issue [Recovering/Resolving]

NARRATIVE: CASE EVENT DATE: 20230511
